FAERS Safety Report 9744089 (Version 1)
Quarter: 2013Q4

REPORT INFORMATION
  Report Type: Spontaneous
  Country: JP (occurrence: JP)
  Receive Date: 20131210
  Receipt Date: 20131210
  Transmission Date: 20140711
  Serious: Yes (Hospitalization)
  Sender: FDA-Public Use
  Company Number: JP-GLAXOSMITHKLINE-B0951232A

PATIENT
  Sex: Male

DRUGS (3)
  1. AVOLVE [Suspect]
     Indication: BENIGN PROSTATIC HYPERPLASIA
     Dosage: .5MG PER DAY
     Route: 048
     Dates: start: 20130126
  2. VESICARE [Concomitant]
     Route: 048
     Dates: start: 201304, end: 201309
  3. VESICARE [Concomitant]
     Route: 048
     Dates: start: 201309

REACTIONS (1)
  - Hepatic function abnormal [Not Recovered/Not Resolved]
